FAERS Safety Report 17867910 (Version 2)
Quarter: 2020Q3

REPORT INFORMATION
  Report Type: Report from Study
  Country: CN (occurrence: CN)
  Receive Date: 20200606
  Receipt Date: 20200708
  Transmission Date: 20201103
  Serious: Yes (Hospitalization)
  Sender: FDA-Public Use
  Company Number: CN-ROCHE-2612898

PATIENT
  Age: 62 Year
  Sex: Female
  Weight: 55 kg

DRUGS (14)
  1. BEVACIZUMAB. [Suspect]
     Active Substance: BEVACIZUMAB
     Indication: PERITONEAL NEOPLASM
  2. BLINDED ATEZOLIZUMAB [Suspect]
     Active Substance: ATEZOLIZUMAB
     Indication: FALLOPIAN TUBE CANCER
  3. BEVACIZUMAB. [Suspect]
     Active Substance: BEVACIZUMAB
     Indication: OVARIAN CANCER
     Dosage: DOSE OF LAST BEVACIZUMAB ADMINISTERED PRIOR TO ADVERSE EVENT AND SERIOUS ADVERSE EVENT ONSET WAS 801
     Route: 042
     Dates: start: 20181228
  4. PACLITAXEL. [Suspect]
     Active Substance: PACLITAXEL
     Indication: PERITONEAL NEOPLASM
  5. PACLITAXEL. [Suspect]
     Active Substance: PACLITAXEL
     Indication: FALLOPIAN TUBE CANCER
  6. PACLITAXEL. [Suspect]
     Active Substance: PACLITAXEL
     Indication: OVARIAN CANCER
     Dosage: DOSE OF LAST PACLITAXEL ADMINISTERED PRIOR TO ADVERSE EVENT AND SERIOUS ADVERSE EVENT ONSET WAS 266
     Route: 042
     Dates: start: 20181207
  7. CARBOPLATIN. [Suspect]
     Active Substance: CARBOPLATIN
     Indication: OVARIAN CANCER
     Dosage: DOSE OF LAST CARBOPLATIN ADMINISTERED PRIOR TO ADVERSE EVENT AND SERIOUS ADVERSE EVENT ONSET WAS 620
     Route: 042
     Dates: start: 20181207
  8. BLINDED ATEZOLIZUMAB [Suspect]
     Active Substance: ATEZOLIZUMAB
     Indication: PERITONEAL NEOPLASM
  9. BEVACIZUMAB. [Suspect]
     Active Substance: BEVACIZUMAB
     Indication: FALLOPIAN TUBE CANCER
  10. ATORVASTATIN CALCIUM. [Concomitant]
     Active Substance: ATORVASTATIN CALCIUM
     Indication: HYPERLIPIDAEMIA
     Route: 065
     Dates: start: 20200517, end: 20200517
  11. BLINDED ATEZOLIZUMAB [Suspect]
     Active Substance: ATEZOLIZUMAB
     Indication: OVARIAN CANCER
     Dosage: ON 24/APR/2020 HAD MOST RECENT DOSE OF BLINDED ATEZOLIZUMAB PRIOR TO ADVERSE EVENT AND SERIOUS ADVER
     Route: 041
     Dates: start: 20181207
  12. CARBOPLATIN. [Suspect]
     Active Substance: CARBOPLATIN
     Indication: FALLOPIAN TUBE CANCER
  13. CARBOPLATIN. [Suspect]
     Active Substance: CARBOPLATIN
     Indication: PERITONEAL NEOPLASM
  14. PERINDOPRIL TERT?BUTYLAMINE [Concomitant]
     Active Substance: PERINDOPRIL ERBUMINE
     Route: 065
     Dates: start: 20200517, end: 20200517

REACTIONS (1)
  - Glomerulonephritis chronic [Recovered/Resolved with Sequelae]

NARRATIVE: CASE EVENT DATE: 20200512
